FAERS Safety Report 6047278-9 (Version None)
Quarter: 2009Q1

REPORT INFORMATION
  Report Type: 
  Country: None (occurrence: None)
  Receive Date: 20090122
  Receipt Date: 20090109
  Transmission Date: 20090719
  Serious: Yes (Other)
  Sender: FDA-Public Use
  Company Number: US-ELI_LILLY_AND_COMPANY-US200805002167

PATIENT
  Age: 76 Year
  Sex: Female

DRUGS (14)
  1. CYMBALTA [Suspect]
     Dosage: 30 MG, UNK
     Dates: start: 20080429, end: 20080429
  2. BENICAR HCT [Concomitant]
     Indication: HYPERTENSION
     Dates: start: 20080401
  3. LUNESTA [Concomitant]
     Indication: INSOMNIA
     Dosage: 1 MG, UNK
     Dates: start: 20080401
  4. OMEPRAZOLE [Concomitant]
     Indication: GASTROOESOPHAGEAL REFLUX DISEASE
     Dosage: 20 MG, UNK
     Dates: start: 20080101
  5. LOTREL [Concomitant]
     Indication: HYPERTENSION
     Dates: start: 20080101
  6. CLONAZEPAM [Concomitant]
     Indication: ANXIETY
     Dosage: 0.5 MG, UNK
     Dates: start: 20071101
  7. SYNTHROID [Concomitant]
     Indication: THYROID DISORDER
     Dosage: 88 UG, UNK
     Dates: start: 20071101
  8. BONIVA [Concomitant]
     Indication: OSTEOPOROSIS
     Dosage: 150 MG, UNK
     Dates: start: 20070701
  9. MIRALAX [Concomitant]
     Indication: CONSTIPATION
     Dates: start: 20070701
  10. DARVOCET-N 100 [Concomitant]
     Indication: PAIN
     Dates: start: 20060901
  11. ASPIRIN [Concomitant]
     Dosage: 81 MG, UNK
  12. FOLIC ACID [Concomitant]
  13. FISH OIL [Concomitant]
  14. CALTRATE [Concomitant]

REACTIONS (2)
  - BLOOD PRESSURE INCREASED [None]
  - SYNCOPE [None]
